FAERS Safety Report 8600729 (Version 3)
Quarter: 2012Q4

REPORT INFORMATION
  Report Type: 
  Country: IT (occurrence: IT)
  Receive Date: 20120606
  Receipt Date: 20121015
  Transmission Date: 20130627
  Serious: Yes (Other)
  Sender: FDA-Public Use
  Company Number: IT-BRISTOL-MYERS SQUIBB COMPANY-16377608

PATIENT
  Age: 32 Year
  Sex: Male

DRUGS (4)
  1. VEPESID [Suspect]
     Indication: TESTICULAR SEMINOMA (PURE)
     Route: 042
     Dates: start: 20110916, end: 20111210
  2. CARBOPLATIN [Suspect]
     Indication: TESTIS CANCER
     Route: 042
     Dates: start: 20110923, end: 20111210
  3. BLEOMYCIN SULFATE [Suspect]
     Indication: TESTICULAR SEMINOMA (PURE)
     Route: 042
     Dates: start: 20110916, end: 20111210
  4. CISPLATIN [Suspect]
     Indication: TESTICULAR SEMINOMA (PURE)
     Dates: start: 20110916, end: 20111210

REACTIONS (4)
  - Neutropenia [Recovering/Resolving]
  - Asthenia [Recovered/Resolved]
  - Vomiting [Recovered/Resolved]
  - Alopecia [Recovering/Resolving]
